FAERS Safety Report 8169589-3 (Version None)
Quarter: 2012Q1

REPORT INFORMATION
  Report Type: 
  Country: None (occurrence: None)
  Receive Date: 20120228
  Receipt Date: 20120217
  Transmission Date: 20120608
  Serious: Yes (Hospitalization, Other)
  Sender: FDA-Public Use
  Company Number: US-SANOFI-AVENTIS-2012SA011677

PATIENT
  Sex: Male

DRUGS (2)
  1. SOLOSTAR [Suspect]
     Dates: start: 20080101
  2. LANTUS [Suspect]
     Dosage: DOSE:26 UNIT(S)
     Route: 058
     Dates: start: 20080101

REACTIONS (2)
  - NERVE INJURY [None]
  - BRAIN NEOPLASM [None]
